FAERS Safety Report 5909326-3 (Version None)
Quarter: 2008Q4

REPORT INFORMATION
  Report Type: 
  Country: None (occurrence: None)
  Receive Date: 20081006
  Receipt Date: 20080917
  Transmission Date: 20090506
  Serious: Yes (Other)
  Sender: FDA-Public Use
  Company Number: NL-PFIZER INC-2008072730

PATIENT
  Sex: Female
  Weight: 67 kg

DRUGS (5)
  1. XALATAN [Suspect]
     Indication: INTRAOCULAR PRESSURE INCREASED
     Route: 047
     Dates: start: 20030101
  2. XALATAN [Suspect]
     Indication: GLAUCOMA
  3. COSOPT [Suspect]
     Indication: INTRAOCULAR PRESSURE INCREASED
     Route: 047
     Dates: start: 20080201
  4. COSOPT [Suspect]
     Indication: GLAUCOMA
  5. THYRAX [Concomitant]
     Route: 048
     Dates: start: 19880101

REACTIONS (4)
  - CHORIORETINOPATHY [None]
  - GLAUCOMA [None]
  - INTRAOCULAR PRESSURE INCREASED [None]
  - VISUAL ACUITY REDUCED [None]
